FAERS Safety Report 22620332 (Version 1)
Quarter: 2023Q2

REPORT INFORMATION
  Report Type: Spontaneous
  Country: US (occurrence: US)
  Receive Date: 20230620
  Receipt Date: 20230620
  Transmission Date: 20230721
  Serious: Yes (Hospitalization, Disabling, Other)
  Sender: FDA-Public Use
  Company Number: US-BRISTOL-MYERS SQUIBB COMPANY-2023-085622

PATIENT
  Age: 61 Year
  Sex: Male
  Weight: 131.54 kg

DRUGS (1)
  1. POMALYST [Suspect]
     Active Substance: POMALIDOMIDE
     Indication: Plasma cell myeloma
     Dosage: FOR WEEK
     Dates: start: 2022

REACTIONS (9)
  - Metastases to spine [Unknown]
  - Mental disorder [Unknown]
  - Cervical spinal cord paralysis [Unknown]
  - Weight decreased [Unknown]
  - Illness [Unknown]
  - Localised infection [Unknown]
  - Pneumonia [Unknown]
  - Kidney infection [Unknown]
  - Bacterial infection [Unknown]
